FAERS Safety Report 20361744 (Version 2)
Quarter: 2022Q1

REPORT INFORMATION
  Report Type: Spontaneous
  Country: SE (occurrence: SE)
  Receive Date: 20220121
  Receipt Date: 20220208
  Transmission Date: 20220423
  Serious: Yes (Hospitalization, Other)
  Sender: FDA-Public Use
  Company Number: SE-NOVARTISPH-NVSC2022SE009850

PATIENT
  Age: 81 Year
  Sex: Female

DRUGS (6)
  1. BISOPROLOL [Suspect]
     Active Substance: BISOPROLOL
     Indication: Cardiac disorder
     Dosage: UNK
     Route: 065
  2. ENTOCORT [Concomitant]
     Active Substance: BUDESONIDE
     Indication: Product used for unknown indication
     Dosage: UNK
     Route: 065
  3. POTASSIUM [Concomitant]
     Active Substance: POTASSIUM
     Indication: Product used for unknown indication
     Dosage: UNK
     Route: 065
  4. CALCIUM [Concomitant]
     Active Substance: CALCIUM
     Indication: Product used for unknown indication
     Dosage: UNK
     Route: 065
  5. VITAMIN D [Concomitant]
     Active Substance: VITAMIN D NOS
     Indication: Product used for unknown indication
     Dosage: UNK
     Route: 065
  6. ZOLOFT [Concomitant]
     Active Substance: SERTRALINE HYDROCHLORIDE
     Indication: Product used for unknown indication
     Dosage: UNK
     Route: 065

REACTIONS (17)
  - Feeling abnormal [Unknown]
  - Illness [Unknown]
  - Pyrexia [Unknown]
  - Loss of consciousness [Unknown]
  - Asthenia [Unknown]
  - Stress [Unknown]
  - Cardiomegaly [Unknown]
  - Atrial flutter [Unknown]
  - Vomiting [Unknown]
  - Cold sweat [Unknown]
  - Myocarditis [Unknown]
  - Syncope [Unknown]
  - Vaccination site discolouration [Unknown]
  - Pallor [Unknown]
  - Palpitations [Unknown]
  - Dyspnoea [Unknown]
  - Hypertension [Unknown]

NARRATIVE: CASE EVENT DATE: 20210101
